FAERS Safety Report 8201898-1 (Version None)
Quarter: 2012Q1

REPORT INFORMATION
  Report Type: 
  Country: None (occurrence: None)
  Receive Date: 20120312
  Receipt Date: 20120302
  Transmission Date: 20120608
  Serious: Yes (Hospitalization, Other)
  Sender: FDA-Public Use
  Company Number: US-BAYER-2011-061320

PATIENT
  Age: 20 Year
  Sex: Female
  Weight: 50 kg

DRUGS (5)
  1. YAZ [Suspect]
     Indication: CONTRACEPTION
  2. YAZ [Suspect]
     Indication: ACNE
     Dosage: UNK
     Route: 048
     Dates: start: 20070601, end: 20100601
  3. YAZ [Suspect]
     Indication: DYSMENORRHOEA
  4. YAZ [Suspect]
     Indication: MENORRHAGIA
  5. DROSPIRENONE AND ETHINYL ESTRADIOL [Suspect]
     Dosage: UNK
     Route: 048
     Dates: start: 20100701

REACTIONS (7)
  - EATING DISORDER [None]
  - CHOLECYSTITIS CHRONIC [None]
  - GALLBLADDER INJURY [None]
  - DIARRHOEA [None]
  - PAIN [None]
  - ABDOMINAL PAIN [None]
  - ABDOMINAL DISTENSION [None]
